FAERS Safety Report 25646113 (Version 2)
Quarter: 2025Q3

REPORT INFORMATION
  Report Type: Spontaneous
  Country: US (occurrence: US)
  Receive Date: 20250805
  Receipt Date: 20250924
  Transmission Date: 20251021
  Serious: No
  Sender: DR REDDYS
  Company Number: US-DRL-USA-USA/2025/07/011552

PATIENT
  Age: 12 Year
  Sex: Male

DRUGS (5)
  1. CYCLOSPORINE [Suspect]
     Active Substance: CYCLOSPORINE
     Indication: Palmoplantar pustulosis
  2. ACITRETIN [Concomitant]
     Active Substance: ACITRETIN
     Indication: Palmoplantar pustulosis
  3. ETANERCEPT [Concomitant]
     Active Substance: ETANERCEPT
     Indication: Palmoplantar pustulosis
  4. USTEKINUMAB [Concomitant]
     Active Substance: USTEKINUMAB
     Indication: Palmoplantar pustulosis
  5. SECUKINUMAB [Concomitant]
     Active Substance: SECUKINUMAB
     Indication: Palmoplantar pustulosis

REACTIONS (1)
  - Therapy non-responder [Unknown]
